FAERS Safety Report 5878692-X (Version None)
Quarter: 2008Q3

REPORT INFORMATION
  Report Type: 
  Country: None (occurrence: None)
  Receive Date: 20080912
  Receipt Date: 20080902
  Transmission Date: 20090109
  Serious: Yes (Death)
  Sender: FDA-Public Use
  Company Number: US-JNJFOC-20080901800

PATIENT
  Age: 19 Year
  Sex: Male

DRUGS (2)
  1. EXTRA STRENGTH TYLENOL [Suspect]
     Indication: DRUG USE FOR UNKNOWN INDICATION
  2. BLACK TAR HEROIN [Suspect]
     Indication: DRUG USE FOR UNKNOWN INDICATION

REACTIONS (2)
  - OVERDOSE [None]
  - SUBSTANCE ABUSE [None]
